FAERS Safety Report 17197576 (Version 1)
Quarter: 2019Q4

REPORT INFORMATION
  Report Type: Spontaneous
  Country: FR (occurrence: FR)
  Receive Date: 20191224
  Receipt Date: 20191224
  Transmission Date: 20200122
  Serious: Yes (Death, Other)
  Sender: FDA-Public Use
  Company Number: FR-BRISTOL-MYERS SQUIBB COMPANY-BMS-2019-122625

PATIENT
  Age: 61 Year
  Sex: Male
  Weight: 76 kg

DRUGS (1)
  1. OPDIVO [Suspect]
     Active Substance: NIVOLUMAB
     Indication: RENAL CANCER
     Dosage: 240 MILLIGRAM
     Route: 042
     Dates: start: 20191030, end: 20191030

REACTIONS (2)
  - Cardiogenic shock [Fatal]
  - Myocarditis [Fatal]

NARRATIVE: CASE EVENT DATE: 20191114
